FAERS Safety Report 13055956 (Version 2)
Quarter: 2017Q1

REPORT INFORMATION
  Report Type: Report from Study
  Country: US (occurrence: US)
  Receive Date: 20161222
  Receipt Date: 20170221
  Transmission Date: 20170428
  Serious: Yes (Other)
  Sender: FDA-Public Use
  Company Number: US-009507513-1612USA010560

PATIENT
  Sex: Female

DRUGS (3)
  1. DEXAMETHASONE. [Suspect]
     Active Substance: DEXAMETHASONE
     Indication: PLASMA CELL MYELOMA
     Dosage: UNK, 1ST LINE TREATMENT WITH CARFILZOMIB
     Route: 048
     Dates: start: 201109
  2. DEXAMETHASONE. [Suspect]
     Active Substance: DEXAMETHASONE
     Dosage: UNK, 2ND LINE TREATMENT WITH DARATUMUMAB AND LENALIDOMIDE (OR OTHER DARATUMUMAB COMBINATION REGIMEN)
     Route: 048
  3. CARFILZOMIB [Suspect]
     Active Substance: CARFILZOMIB
     Indication: PLASMA CELL MYELOMA
     Dosage: UNK, 1ST LINE TREATMENT WITH DEXAMETHASONE
     Dates: start: 201109

REACTIONS (2)
  - Plasma cell myeloma [Unknown]
  - Adverse event [Unknown]
